FAERS Safety Report 14366246 (Version 2)
Quarter: 2018Q1

REPORT INFORMATION
  Report Type: Report from Study
  Country: None (occurrence: FI)
  Receive Date: 20180109
  Receipt Date: 20180321
  Transmission Date: 20180509
  Serious: Yes (Hospitalization, Disabling)
  Sender: FDA-Public Use
  Company Number: FI-ABBVIE-18K-055-2215021-00

PATIENT
  Sex: Female
  Weight: 41.5 kg

DRUGS (10)
  1. OMEPRAZOLE ACTAVIS [Concomitant]
     Active Substance: OMEPRAZOLE
     Indication: PRODUCT USED FOR UNKNOWN INDICATION
     Route: 048
     Dates: start: 20170224
  2. PROGYNOVA [Concomitant]
     Active Substance: ESTRADIOL VALERATE
     Indication: HORMONE REPLACEMENT THERAPY
     Route: 048
     Dates: start: 20170529
  3. RIVATRIL [Concomitant]
     Active Substance: CLONAZEPAM
     Indication: MUSCLE SPASMS
     Dosage: 4-5 TIMES A DAY AS NEEDED
     Route: 048
     Dates: start: 20170726
  4. TENOX [Concomitant]
     Indication: SLEEP DISORDER THERAPY
     Route: 048
     Dates: start: 20161117
  5. VAGIFEM [Concomitant]
     Active Substance: ESTRADIOL
     Indication: PRODUCT USED FOR UNKNOWN INDICATION
     Dates: start: 20150609
  6. PEGORION [Concomitant]
     Active Substance: POLYETHYLENE GLYCOL 4000
     Indication: CONSTIPATION
     Route: 048
     Dates: start: 20141023
  7. NEUROBION FORTE [Concomitant]
     Active Substance: CYANOCOBALAMIN\PYRIDOXINE HYDROCHLORIDE\THIAMINE DISULFIDE
     Indication: VITAMIN B COMPLEX DEFICIENCY
     Route: 048
     Dates: start: 20180103
  8. DUODOPA [Suspect]
     Active Substance: CARBIDOPA\LEVODOPA
     Dosage: MD 6.5 ML; CD 2.0 ML/H; ED 1.0 ML AS NEEDED
     Route: 050
     Dates: start: 20141006
  9. DIVISUN [Concomitant]
     Indication: VITAMIN D DEFICIENCY
     Route: 048
     Dates: start: 20180110
  10. DUODOPA [Suspect]
     Active Substance: CARBIDOPA\LEVODOPA
     Indication: PARKINSON^S DISEASE
     Route: 050
     Dates: start: 20140929, end: 20141006

REACTIONS (3)
  - Abnormal loss of weight [Not Recovered/Not Resolved]
  - Decreased appetite [Not Recovered/Not Resolved]
  - Abdominal distension [Not Recovered/Not Resolved]

NARRATIVE: CASE EVENT DATE: 2017
